FAERS Safety Report 26028736 (Version 1)
Quarter: 2025Q4

REPORT INFORMATION
  Report Type: Spontaneous
  Country: EU (occurrence: EU)
  Receive Date: 20251111
  Receipt Date: 20251111
  Transmission Date: 20260118
  Serious: Yes (Other)
  Sender: BRISTOL-MYERS SQUIBB COMPANY
  Company Number: EU-BRISTOL-MYERS SQUIBB COMPANY-2025-150307

PATIENT
  Age: 55 Year
  Sex: Female

DRUGS (4)
  1. NIVOLUMAB [Suspect]
     Active Substance: NIVOLUMAB
     Indication: Renal cell carcinoma stage IV
     Route: 042
     Dates: start: 20230905, end: 202312
  2. NIVOLUMAB [Suspect]
     Active Substance: NIVOLUMAB
     Route: 042
     Dates: start: 20231205, end: 202409
  3. IPILIMUMAB [Suspect]
     Active Substance: IPILIMUMAB
     Indication: Renal cell carcinoma stage IV
     Route: 042
     Dates: start: 20230905, end: 202312
  4. DENOSUMAB [Concomitant]
     Active Substance: DENOSUMAB
     Indication: Metastatic renal cell carcinoma

REACTIONS (2)
  - Central nervous system lesion [Unknown]
  - Malignant neoplasm progression [Unknown]

NARRATIVE: CASE EVENT DATE: 20231123
